FAERS Safety Report 8251605-1 (Version None)
Quarter: 2012Q2

REPORT INFORMATION
  Report Type: 
  Country: None (occurrence: None)
  Receive Date: 20120402
  Receipt Date: 20120223
  Transmission Date: 20120825
  Serious: No
  Sender: FDA-Public Use
  Company Number: US-ABBOTT-12P-163-0912339-00

PATIENT
  Age: 59 Year
  Sex: Male
  Weight: 83.99 kg

DRUGS (8)
  1. ANDROGEL [Suspect]
     Indication: BLOOD TESTOSTERONE DECREASED
     Route: 061
     Dates: start: 20120126
  2. NAPROSYN [Concomitant]
     Indication: ANTICOAGULANT THERAPY
  3. METFORMIN HCL [Concomitant]
     Indication: TYPE 2 DIABETES MELLITUS
  4. UNKNOWN BLOOD SUGAR PILL [Concomitant]
     Indication: TYPE 2 DIABETES MELLITUS
     Dosage: GREEN PILL
  5. UNKNOWN KIDNEY PILL [Concomitant]
     Indication: PRODUCT USED FOR UNKNOWN INDICATION
     Dosage: RED PILL
  6. PHOSPHORUS [Concomitant]
     Indication: MINERAL SUPPLEMENTATION
     Dosage: ABOUT 5 TO 10 MILLIGRAMS
  7. FISH OIL [Concomitant]
     Indication: PRODUCT USED FOR UNKNOWN INDICATION
  8. ASPIRIN [Concomitant]
     Indication: PRODUCT USED FOR UNKNOWN INDICATION

REACTIONS (6)
  - HYPERHIDROSIS [None]
  - CHEST DISCOMFORT [None]
  - HOT FLUSH [None]
  - ABDOMINAL DISCOMFORT [None]
  - FATIGUE [None]
  - ERECTILE DYSFUNCTION [None]
